FAERS Safety Report 9236753 (Version 1)
Quarter: 2013Q2

REPORT INFORMATION
  Report Type: Spontaneous
  Country: US (occurrence: US)
  Receive Date: 20130417
  Receipt Date: 20130417
  Transmission Date: 20140414
  Serious: No
  Sender: FDA-Public Use
  Company Number: US-009507513-1304USA006112

PATIENT
  Sex: Male

DRUGS (2)
  1. CLARITIN [Suspect]
     Indication: HYPERSENSITIVITY
     Dosage: 20 MG, UNKNOWN
     Route: 048
     Dates: start: 201303
  2. CLARITIN [Suspect]
     Indication: MEDICAL OBSERVATION

REACTIONS (2)
  - Somnolence [Unknown]
  - Prescribed overdose [Unknown]
